FAERS Safety Report 6520882-7 (Version None)
Quarter: 2009Q4

REPORT INFORMATION
  Report Type: 
  Country: None (occurrence: None)
  Receive Date: 20091229
  Receipt Date: 20091216
  Transmission Date: 20100525
  Serious: No
  Sender: FDA-Public Use
  Company Number: US-B.I. PHARMACEUTICALS,INC./RIDGEFIELD-2009-BP-14260BP

PATIENT
  Sex: Male

DRUGS (5)
  1. SPIRIVA [Suspect]
     Indication: EMPHYSEMA
     Dosage: 18 MCG
     Route: 055
     Dates: start: 20090601
  2. DUONEB [Suspect]
     Indication: EMPHYSEMA
  3. OXYGEN [Concomitant]
     Indication: EMPHYSEMA
  4. PROVENTIL [Concomitant]
     Indication: EMPHYSEMA
  5. VENTOLIN [Concomitant]
     Indication: EMPHYSEMA

REACTIONS (1)
  - DYSPNOEA [None]
